FAERS Safety Report 15276001 (Version 1)
Quarter: 2018Q3

REPORT INFORMATION
  Report Type: Spontaneous
  Country: US (occurrence: US)
  Receive Date: 20180727
  Receipt Date: 20180727
  Transmission Date: 20181010
  Serious: No
  Sender: FDA-Public Use
  Company Number: None

PATIENT
  Age: 76 Year
  Sex: Female

DRUGS (14)
  1. PYRIDOXINE [Concomitant]
     Active Substance: PYRIDOXINE
  2. VITAMIN C [Concomitant]
     Active Substance: ASCORBIC ACID
  3. ASPIRIN. [Concomitant]
     Active Substance: ASPIRIN
  4. ATORVASTATIN [Concomitant]
     Active Substance: ATORVASTATIN
  5. MEMANTINE. [Concomitant]
     Active Substance: MEMANTINE
  6. OMEPRAZOLE. [Concomitant]
     Active Substance: OMEPRAZOLE
  7. LEVOTHYROXINE. [Concomitant]
     Active Substance: LEVOTHYROXINE
  8. VITAMIN A [Concomitant]
     Active Substance: VITAMIN A
  9. EZETIMIBE. [Concomitant]
     Active Substance: EZETIMIBE
  10. METOPROLOL. [Concomitant]
     Active Substance: METOPROLOL
  11. ASCORBIC ACID. [Concomitant]
     Active Substance: ASCORBIC ACID
  12. MAGNESIUM OXIDE. [Concomitant]
     Active Substance: MAGNESIUM OXIDE
  13. ALTEPLASE. [Suspect]
     Active Substance: ALTEPLASE
     Indication: CEREBROVASCULAR ACCIDENT
     Route: 042
     Dates: start: 20180522, end: 20180522
  14. VITAMIN D [Concomitant]
     Active Substance: CHOLECALCIFEROL

REACTIONS (1)
  - Cerebral haemorrhage [None]

NARRATIVE: CASE EVENT DATE: 20180522
